FAERS Safety Report 10435208 (Version 2)
Quarter: 2014Q4

REPORT INFORMATION
  Report Type: Spontaneous
  Country: JP (occurrence: JP)
  Receive Date: 20140907
  Receipt Date: 20141022
  Transmission Date: 20150528
  Serious: Yes (Death, Other)
  Sender: FDA-Public Use
  Company Number: PHHY2013JP162181

PATIENT
  Age: 46 Year
  Sex: Male

DRUGS (1)
  1. GLIVEC [Suspect]
     Active Substance: IMATINIB MESYLATE
     Indication: CHRONIC MYELOID LEUKAEMIA
     Dosage: 400 MG, (DAILY)
     Route: 048

REACTIONS (4)
  - Malignant neoplasm progression [Recovering/Resolving]
  - Graft versus host disease [Fatal]
  - Chronic myeloid leukaemia [Recovering/Resolving]
  - Lung disorder [Fatal]
